FAERS Safety Report 14235314 (Version 1)
Quarter: 2017Q4

REPORT INFORMATION
  Report Type: Spontaneous
  Country: JP (occurrence: JP)
  Receive Date: 20171129
  Receipt Date: 20171129
  Transmission Date: 20180321
  Serious: Yes (Hospitalization)
  Sender: FDA-Public Use
  Company Number: JP-INGENUS PHARMACEUTICALS NJ, LLC-ING201711-000589

PATIENT
  Sex: Female
  Weight: 45 kg

DRUGS (2)
  1. CARISOPRODOL AND ASPIRIN [Suspect]
     Active Substance: ASPIRIN\CARISOPRODOL
     Dosage: 300 TABLET
  2. DIHYDROPYRIDINE [Suspect]
     Active Substance: UNSPECIFIED INGREDIENT
     Dosage: 20 TABLETS

REACTIONS (7)
  - Toxicity to various agents [Recovered/Resolved]
  - Hypoacusis [Recovered/Resolved]
  - Vomiting [Recovered/Resolved]
  - Intentional overdose [None]
  - Nausea [Recovered/Resolved]
  - Deafness [Recovered/Resolved]
  - Tinnitus [Recovered/Resolved]
